FAERS Safety Report 19890325 (Version 1)
Quarter: 2021Q3

REPORT INFORMATION
  Report Type: Spontaneous
  Country: US (occurrence: US)
  Receive Date: 20210928
  Receipt Date: 20210928
  Transmission Date: 20211014
  Serious: Yes (Other)
  Sender: FDA-Public Use
  Company Number: None

PATIENT
  Age: 50 Year
  Sex: Male
  Weight: 105.75 kg

DRUGS (11)
  1. RITALIN [Suspect]
     Active Substance: METHYLPHENIDATE HYDROCHLORIDE
     Indication: ATTENTION DEFICIT HYPERACTIVITY DISORDER
     Dosage: ?          QUANTITY:1 TABLET(S);OTHER FREQUENCY:TAKE AT 1 PM;?
     Route: 048
  2. KLONIPIN [Concomitant]
     Active Substance: CLONAZEPAM
  3. TEA [Concomitant]
     Active Substance: TEA LEAF
  4. VITAMIN C [Concomitant]
     Active Substance: ASCORBIC ACID
  5. MORPHINE [Concomitant]
     Active Substance: MORPHINE
  6. NEXIUM [Concomitant]
     Active Substance: ESOMEPRAZOLE MAGNESIUM
  7. ZINC. [Concomitant]
     Active Substance: ZINC
  8. SARAQUEL [Concomitant]
  9. FISH OIL [Concomitant]
     Active Substance: FISH OIL
  10. ADDERALL [Suspect]
     Active Substance: AMPHETAMINE ASPARTATE\AMPHETAMINE SULFATE\DEXTROAMPHETAMINE SACCHARATE\DEXTROAMPHETAMINE SULFATE
  11. LITHIUM. [Concomitant]
     Active Substance: LITHIUM

REACTIONS (3)
  - Headache [None]
  - Product substitution issue [None]
  - Drug ineffective [None]

NARRATIVE: CASE EVENT DATE: 20210601
